FAERS Safety Report 9686626 (Version 1)
Quarter: 2013Q4

REPORT INFORMATION
  Report Type: Spontaneous
  Country: ES (occurrence: ES)
  Receive Date: 20131113
  Receipt Date: 20131113
  Transmission Date: 20140711
  Serious: Yes (Hospitalization)
  Sender: FDA-Public Use
  Company Number: ES-GLAXOSMITHKLINE-B0942080A

PATIENT
  Sex: 0

DRUGS (7)
  1. RANITIDINE [Suspect]
     Indication: PRODUCT USED FOR UNKNOWN INDICATION
     Route: 065
  2. ATENOLOL [Concomitant]
  3. FUROSEMIDE [Concomitant]
  4. OLMESARTAN [Concomitant]
  5. METFORMIN [Concomitant]
  6. SINTROM [Concomitant]
  7. OMEPRAZOLE [Concomitant]

REACTIONS (17)
  - Vasculitis [Recovered/Resolved]
  - Hypersensitivity [Recovered/Resolved]
  - Pyrexia [Unknown]
  - Petechiae [Unknown]
  - Toxicity to various agents [Unknown]
  - Chills [Unknown]
  - Hyperhidrosis [Unknown]
  - Erectile dysfunction [Unknown]
  - Arthralgia [Unknown]
  - Pain in extremity [Unknown]
  - Pain [Unknown]
  - Joint swelling [Unknown]
  - Body temperature increased [Unknown]
  - Arthropathy [Unknown]
  - Blood urea increased [Unknown]
  - Blood creatine increased [Unknown]
  - Skin injury [Unknown]
